FAERS Safety Report 16188596 (Version 11)
Quarter: 2022Q2

REPORT INFORMATION
  Report Type: Report from Study
  Country: CN (occurrence: None)
  Receive Date: 20190412
  Receipt Date: 20220625
  Transmission Date: 20220721
  Serious: Yes (Hospitalization)
  Sender: FDA-Public Use
  Company Number: CN-ROCHE-2295547

PATIENT
  Age: 54 Year
  Sex: Female
  Weight: 40 kg

DRUGS (14)
  1. PLACEBO [Suspect]
     Active Substance: UNSPECIFIED INGREDIENT
     Indication: Ovarian cancer
     Dosage: 10:00:44 AM: MOST RECENT DOSE OF PLACEBO PRIOR TO AE/SAE ONSET ON 07/MAR/2019
     Route: 042
     Dates: start: 20190122
  2. PACLITAXEL [Suspect]
     Active Substance: PACLITAXEL
     Indication: Ovarian cancer
     Dosage: MOST RECENT DOSE OF PACLITAXEL (229 MG) PRIOR TO AE/SAE ONSET ON 07/MAR/2019
     Route: 042
     Dates: start: 20190122
  3. CARBOPLATIN [Suspect]
     Active Substance: CARBOPLATIN
     Indication: Ovarian cancer
     Dosage: MOST RECENT DOSE OF CARBOPLATIN (682 MG) PRIOR TO AE/SAE ONSET ON 07/MAR/2019?AT A DOSE TO ACHIEVE A
     Route: 042
     Dates: start: 20190122
  4. BEVACIZUMAB [Suspect]
     Active Substance: BEVACIZUMAB
     Indication: Ovarian cancer
     Dosage: MOST RECENT DOSE OF BEVACIZUMAB (585 MG) PRIOR TO AE/SAE ONSET ON 07/MAR/2019
     Route: 042
     Dates: start: 20190212
  5. DEXAMETHASONE [Concomitant]
     Active Substance: DEXAMETHASONE
     Dates: start: 20190307, end: 20190307
  6. FUROSEMIDE [Concomitant]
     Active Substance: FUROSEMIDE
     Dates: start: 20190307, end: 20190307
  7. ONDANSETRON [Concomitant]
     Active Substance: ONDANSETRON
     Dates: start: 20190307, end: 20190307
  8. OMEPRAZOLE [Concomitant]
     Active Substance: OMEPRAZOLE
     Dates: start: 20190307, end: 20190307
  9. DIPHENHYDRAMINE [Concomitant]
     Active Substance: DIPHENHYDRAMINE
     Dates: start: 20190307, end: 20190307
  10. ACETAMINOPHEN [Concomitant]
     Active Substance: ACETAMINOPHEN
     Indication: Nasopharyngitis
     Dates: start: 20190123, end: 20190225
  11. RANITIDINE [Concomitant]
     Active Substance: RANITIDINE
     Route: 065
     Dates: start: 20190327, end: 20190407
  12. LEVOFLOXACIN [Concomitant]
     Active Substance: LEVOFLOXACIN
     Route: 065
     Dates: start: 20190327, end: 20190407
  13. PHLOROGLUCINOL [Concomitant]
     Active Substance: PHLOROGLUCINOL
     Indication: Abdominal pain
     Route: 065
     Dates: start: 20190327, end: 20190407
  14. ORNIDAZOLE [Concomitant]
     Active Substance: ORNIDAZOLE
     Indication: Intestinal obstruction
     Dates: start: 20190329, end: 20190404

REACTIONS (1)
  - Ileus [Recovered/Resolved]

NARRATIVE: CASE EVENT DATE: 20190326
